FAERS Safety Report 18653943 (Version 1)
Quarter: 2020Q4

REPORT INFORMATION
  Report Type: Spontaneous
  Country: AU (occurrence: AU)
  Receive Date: 20201223
  Receipt Date: 20201223
  Transmission Date: 20210114
  Serious: Yes (Other)
  Sender: FDA-Public Use
  Company Number: AU-JNJFOC-20201236390

PATIENT
  Sex: Male

DRUGS (1)
  1. INFLIXIMAB, RECOMBINANT [Suspect]
     Active Substance: INFLIXIMAB
     Indication: ANKYLOSING SPONDYLITIS
     Route: 042

REACTIONS (5)
  - Sinus operation [Recovered/Resolved]
  - Rhinoplasty [Recovered/Resolved]
  - Wisdom teeth removal [Recovered/Resolved]
  - Herpes zoster [Recovered/Resolved]
  - Shoulder operation [Recovered/Resolved]

NARRATIVE: CASE EVENT DATE: 2010
